FAERS Safety Report 8763387 (Version 2)
Quarter: 2012Q4

REPORT INFORMATION
  Report Type: 
  Country: US (occurrence: US)
  Receive Date: 20120830
  Receipt Date: 20120907
  Transmission Date: 20130627
  Serious: Yes (Death, Congenital Anomaly, Other)
  Sender: FDA-Public Use
  Company Number: US-BAYER-2012-087176

PATIENT
  Weight: 2.09 kg

DRUGS (1)
  1. MIRENA [Suspect]
     Dosage: 20 mcg/24hr, CONT
     Route: 064
     Dates: start: 201112, end: 20120804

REACTIONS (3)
  - Congenital diaphragmatic hernia [Fatal]
  - Premature baby [None]
  - Respiratory failure [Fatal]
